FAERS Safety Report 7283399-0 (Version None)
Quarter: 2011Q1

REPORT INFORMATION
  Report Type: 
  Country: None (occurrence: None)
  Receive Date: 20110209
  Receipt Date: 20100913
  Transmission Date: 20110831
  Serious: No
  Sender: FDA-Public Use
  Company Number: A0880850A

PATIENT
  Sex: Female

DRUGS (2)
  1. ANTIHYPERTENSIVE [Concomitant]
     Indication: BLOOD PRESSURE
  2. PAROXETINE HCL [Suspect]
     Dosage: 12.5MG PER DAY
     Route: 048

REACTIONS (1)
  - MALAISE [None]
